FAERS Safety Report 25683269 (Version 1)
Quarter: 2025Q3

REPORT INFORMATION
  Report Type: Spontaneous
  Country: US (occurrence: US)
  Receive Date: 20250814
  Receipt Date: 20250814
  Transmission Date: 20251021
  Serious: No
  Sender: INSUD PHARMA
  Company Number: US-AGILE THERAPEUTICS, INC.-US-AGI-2025-000968

PATIENT
  Age: 21 Year
  Sex: Female

DRUGS (2)
  1. TWIRLA [Suspect]
     Active Substance: ETHINYL ESTRADIOL\LEVONORGESTREL
     Indication: Pregnancy
     Route: 062
     Dates: start: 20250401
  2. TWIRLA [Suspect]
     Active Substance: ETHINYL ESTRADIOL\LEVONORGESTREL
     Indication: Contraception

REACTIONS (3)
  - Muscle spasms [Not Recovered/Not Resolved]
  - Intermenstrual bleeding [Not Recovered/Not Resolved]
  - Incorrect product administration duration [Recovering/Resolving]

NARRATIVE: CASE EVENT DATE: 20250401
